FAERS Safety Report 7588766-3 (Version None)
Quarter: 2011Q3

REPORT INFORMATION
  Report Type: 
  Country: None (occurrence: None)
  Receive Date: 20110705
  Receipt Date: 20110623
  Transmission Date: 20111222
  Serious: Yes (Hospitalization)
  Sender: FDA-Public Use
  Company Number: FR-SANOFI-AVENTIS-2011SA031059

PATIENT
  Age: 72 Year
  Sex: Male
  Weight: 67 kg

DRUGS (14)
  1. MULTAQ [Suspect]
     Indication: ATRIAL FIBRILLATION
     Route: 048
     Dates: start: 20101126, end: 20110419
  2. LEVOTHYROXINE SODIUM [Concomitant]
     Indication: HYPOTHYROIDISM
     Route: 048
     Dates: start: 20030101
  3. PREVISCAN [Concomitant]
     Indication: ATRIAL FIBRILLATION
     Route: 048
  4. ATORVASTATIN CALCIUM [Concomitant]
     Indication: CARDIAC DISORDER
     Route: 048
  5. ALDACTONE [Concomitant]
     Route: 048
  6. KREDEX [Concomitant]
     Route: 048
  7. LANSOPRAZOLE [Concomitant]
     Route: 048
  8. PREVISCAN [Concomitant]
     Route: 048
  9. SULFASALAZINE [Concomitant]
     Indication: PSORIASIS
     Route: 048
  10. LASIX [Concomitant]
     Route: 048
  11. ATARAX [Concomitant]
     Route: 048
  12. ZOPICLONE [Concomitant]
     Route: 048
  13. ASPIRIN [Concomitant]
     Indication: PROPHYLAXIS
     Route: 048
  14. PERINDOPRIL [Concomitant]
     Indication: CARDIAC DISORDER
     Route: 048

REACTIONS (2)
  - RENAL IMPAIRMENT [None]
  - CREATININE RENAL CLEARANCE DECREASED [None]
